FAERS Safety Report 16234097 (Version 1)
Quarter: 2019Q2

REPORT INFORMATION
  Report Type: Other
  Country: GB (occurrence: GB)
  Receive Date: 20190424
  Receipt Date: 20190424
  Transmission Date: 20190711
  Serious: Yes (Hospitalization)
  Sender: FDA-Public Use
  Company Number: GB-HERITAGE PHARMACEUTICALS-2019HTG00160

PATIENT
  Age: 68 Year
  Sex: Female

DRUGS (15)
  1. SODIUM PICOSULFATE [Concomitant]
     Active Substance: SODIUM PICOSULFATE
  2. DIAZEPAM. [Concomitant]
     Active Substance: DIAZEPAM
  3. FERROUS FUMARATE [Concomitant]
     Active Substance: FERROUS FUMARATE
     Dosage: TO BE RESTARTED 5 DAYS AFTER LAST DOSE OF FERINJECT (FERRI CARBOXYMALTOSUM)
  4. NALOXEGOL [Concomitant]
     Active Substance: NALOXEGOL
  5. LEVOTHYROXINE. [Concomitant]
     Active Substance: LEVOTHYROXINE
  6. COSMOCOL [Concomitant]
  7. TRAMADOL. [Suspect]
     Active Substance: TRAMADOL
     Indication: FIBROMYALGIA
     Dosage: 50-100 MG, 4X/DAY AS REQUIRED
     Dates: start: 20181201, end: 20190321
  8. ZOPICLONE [Concomitant]
     Active Substance: ZOPICLONE
  9. PROPRANOLOL [Concomitant]
     Active Substance: PROPRANOLOL HYDROCHLORIDE
  10. OMEPRAZOLE. [Concomitant]
     Active Substance: OMEPRAZOLE
  11. DULOXETINE. [Concomitant]
     Active Substance: DULOXETINE
  12. RISPERIDONE. [Concomitant]
     Active Substance: RISPERIDONE
  13. PARACETAMOL [Concomitant]
     Active Substance: ACETAMINOPHEN
  14. BENDROFLUMETHIAZIDE [Concomitant]
     Active Substance: BENDROFLUMETHIAZIDE
  15. FELODIPINE. [Suspect]
     Active Substance: FELODIPINE
     Indication: ESSENTIAL HYPERTENSION
     Dosage: 2.5 MG, 1X/DAY IN THE MORNING
     Dates: start: 20180601, end: 20190321

REACTIONS (8)
  - Condition aggravated [Unknown]
  - Iron deficiency anaemia [Unknown]
  - Abdominal pain upper [Unknown]
  - Vomiting [Recovered/Resolved]
  - Oedema peripheral [Recovering/Resolving]
  - Gastritis [Unknown]
  - Hiatus hernia [Unknown]
  - Faeces discoloured [Unknown]

NARRATIVE: CASE EVENT DATE: 20181205
